FAERS Safety Report 5321871-0 (Version None)
Quarter: 2007Q2

REPORT INFORMATION
  Report Type: 
  Country: None (occurrence: None)
  Receive Date: 20070510
  Receipt Date: 20070504
  Transmission Date: 20071010
  Serious: Yes (Hospitalization)
  Sender: FDA-Public Use
  Company Number: SK-BOEHRINGER INGELHEIM PHARMACEUTICALS, INC.-2007-AP-00173AP

PATIENT
  Sex: Female

DRUGS (5)
  1. AGGRENOX [Suspect]
     Indication: EPILEPSY
     Route: 048
     Dates: start: 20061212, end: 20061213
  2. TRITACE [Concomitant]
     Route: 048
  3. SIMVACARD [Concomitant]
     Route: 048
  4. NEOGILURYTMAL [Concomitant]
     Route: 048
  5. EUTHYROX [Concomitant]
     Route: 048

REACTIONS (5)
  - FEELING COLD [None]
  - HEADACHE [None]
  - HYPOTENSION [None]
  - NAUSEA [None]
  - VOMITING [None]
